FAERS Safety Report 7535513-7 (Version None)
Quarter: 2011Q2

REPORT INFORMATION
  Report Type: 
  Country: None (occurrence: None)
  Receive Date: 20110609
  Receipt Date: 20110513
  Transmission Date: 20111010
  Serious: Yes (Other)
  Sender: FDA-Public Use
  Company Number: US-BAYER-201030308NA

PATIENT
  Age: 45 Year
  Sex: Female
  Weight: 54 kg

DRUGS (6)
  1. ZOLPIDEM TARTRATE [Concomitant]
     Dosage: 10 MG, UNK
     Dates: start: 20091001
  2. YAZ [Suspect]
     Indication: CONTRACEPTION
     Dosage: UNK UNK, UNK
     Route: 048
     Dates: start: 20080101, end: 20090501
  3. YAZ [Suspect]
     Indication: PREMENSTRUAL SYNDROME
  4. XANAX [Concomitant]
     Dosage: UNK
     Dates: start: 20091001
  5. YASMIN [Suspect]
     Indication: PREMENSTRUAL SYNDROME
  6. YASMIN [Suspect]
     Indication: CONTRACEPTION
     Dosage: UNK
     Route: 048
     Dates: start: 20020101, end: 20080101

REACTIONS (5)
  - CHOLECYSTITIS [None]
  - ABDOMINAL PAIN UPPER [None]
  - DYSURIA [None]
  - CHOLECYSTITIS CHRONIC [None]
  - CHOLELITHIASIS [None]
